FAERS Safety Report 15801415 (Version 1)
Quarter: 2019Q1

REPORT INFORMATION
  Report Type: Report from Study
  Country: None (occurrence: CA)
  Receive Date: 20190109
  Receipt Date: 20190109
  Transmission Date: 20190417
  Serious: Yes (Other)
  Sender: FDA-Public Use
  Company Number: CA-ABBVIE-19K-028-2613766-00

PATIENT
  Age: 56 Year
  Sex: Female

DRUGS (1)
  1. HUMIRA [Suspect]
     Active Substance: ADALIMUMAB
     Indication: CROHN^S DISEASE
     Route: 058
     Dates: start: 20110626, end: 20181230

REACTIONS (3)
  - Ileostomy [Recovering/Resolving]
  - Abdominal hernia [Recovering/Resolving]
  - Colectomy total [Recovering/Resolving]

NARRATIVE: CASE EVENT DATE: 20181126
